FAERS Safety Report 10075756 (Version 2)
Quarter: 2014Q2

REPORT INFORMATION
  Report Type: Spontaneous
  Country: FR (occurrence: FR)
  Receive Date: 20140414
  Receipt Date: 20140620
  Transmission Date: 20141212
  Serious: Yes (Other)
  Sender: FDA-Public Use
  Company Number: PHHY2014FR040176

PATIENT
  Age: 63 Year
  Sex: Female

DRUGS (3)
  1. TASIGNA [Suspect]
     Indication: ACUTE LYMPHOCYTIC LEUKAEMIA
     Dosage: 2 DF, BID
     Route: 048
     Dates: start: 20100108, end: 20120330
  2. TASIGNA [Suspect]
     Indication: OFF LABEL USE
     Dosage: 2 DF, BID
     Route: 048
     Dates: start: 20130215, end: 20140325
  3. PROZAC [Suspect]
     Indication: DEPRESSION
     Dosage: 20 MG, QD
     Route: 048
     Dates: end: 20140325

REACTIONS (1)
  - Hepatocellular injury [Recovered/Resolved]
